FAERS Safety Report 5774833-3 (Version None)
Quarter: 2008Q2

REPORT INFORMATION
  Report Type: 
  Country: None (occurrence: None)
  Receive Date: 20080616
  Receipt Date: 20080616
  Transmission Date: 20081010
  Serious: Yes (Life-Threatening, Hospitalization)
  Sender: FDA-Public Use
  Company Number: None

PATIENT
  Sex: Male
  Weight: 115.6672 kg

DRUGS (2)
  1. LEVAQUIN [Suspect]
     Indication: CELLULITIS
     Dosage: 500 MG DAILY BY MOUTH
     Route: 048
     Dates: start: 20071006, end: 20071008
  2. LEVAQUIN [Suspect]
     Indication: INFECTION
     Dosage: 500 MG DAILY BY MOUTH
     Route: 048
     Dates: start: 20071006, end: 20071008

REACTIONS (6)
  - CONFUSIONAL STATE [None]
  - DYSPNOEA [None]
  - GAIT DISTURBANCE [None]
  - MALAISE [None]
  - TREMOR [None]
  - VISION BLURRED [None]
